FAERS Safety Report 8605155-0 (Version None)
Quarter: 2012Q3

REPORT INFORMATION
  Report Type: 
  Country: None (occurrence: None)
  Receive Date: 20120820
  Receipt Date: 20120814
  Transmission Date: 20120928
  Serious: Yes (Other)
  Sender: FDA-Public Use
  Company Number: US-PFIZER INC-2012182111

PATIENT
  Age: 66 Year
  Sex: Female
  Weight: 113 kg

DRUGS (1)
  1. EFFEXOR XR [Suspect]
     Indication: MENTAL DISORDER
     Dosage: 150 MG, 2X/DAY
     Route: 048
     Dates: start: 20080101

REACTIONS (2)
  - LIGAMENT RUPTURE [None]
  - PAIN [None]
